FAERS Safety Report 11913186 (Version 1)
Quarter: 2016Q1

REPORT INFORMATION
  Report Type: Spontaneous
  Country: US (occurrence: None)
  Receive Date: 20160112
  Receipt Date: 20160112
  Transmission Date: 20160526
  Serious: Yes (Hospitalization)
  Sender: FDA-Public Use
  Company Number: None

PATIENT
  Age: 45 Year
  Sex: Female
  Weight: 124.29 kg

DRUGS (1)
  1. HERCEPTIN [Suspect]
     Active Substance: TRASTUZUMAB
     Dosage: EVERY 3 WEEKS  INTO A VEIN
     Route: 042
     Dates: start: 20160109

REACTIONS (2)
  - Dyspnoea [None]
  - Pulmonary oedema [None]

NARRATIVE: CASE EVENT DATE: 20160109
